FAERS Safety Report 12619249 (Version 3)
Quarter: 2018Q4

REPORT INFORMATION
  Report Type: Spontaneous
  Country: HU (occurrence: HU)
  Receive Date: 20160803
  Receipt Date: 20181018
  Transmission Date: 20190204
  Serious: Yes (Other)
  Sender: FDA-Public Use
  Company Number: HU-PFIZER INC-2016369009

PATIENT
  Age: 33 Year
  Sex: Female

DRUGS (3)
  1. TIAPRIDE [Concomitant]
     Active Substance: TIAPRIDE
     Dosage: 300 MG, DAILY
  2. ALPRAZOLAM. [Suspect]
     Active Substance: ALPRAZOLAM
     Dosage: 1.5 MG, DAILY
  3. DISULFIRAM. [Concomitant]
     Active Substance: DISULFIRAM
     Indication: SUICIDE ATTEMPT
     Dosage: 20 G, SINGLE

REACTIONS (5)
  - Somnolence [Unknown]
  - Miosis [Unknown]
  - Confusional state [Unknown]
  - Coma [Recovering/Resolving]
  - Status epilepticus [Unknown]
